FAERS Safety Report 4862389-9 (Version None)
Quarter: 2005Q4

REPORT INFORMATION
  Report Type: 
  Country: None (occurrence: None)
  Receive Date: 20051219
  Receipt Date: 20051219
  Transmission Date: 20060501
  Serious: Yes (Hospitalization)
  Sender: FDA-Public Use
  Company Number: None

PATIENT
  Age: 81 Year
  Sex: Female

DRUGS (2)
  1. MELOXICAM     15MG [Suspect]
     Indication: OSTEOARTHRITIS
     Dosage: 15MG   DAILY   PO   (THERAPY DATES/DURATION:  LAST FEW MONTHS)
     Route: 048
  2. ASPIRIN [Suspect]
     Indication: HEADACHE
     Dosage: 325MG   BID   PO
     Route: 048

REACTIONS (5)
  - DUODENAL ULCER [None]
  - GASTRIC ULCER [None]
  - HAEMATEMESIS [None]
  - HAEMOGLOBIN DECREASED [None]
  - NAUSEA [None]
